FAERS Safety Report 4666406-0 (Version None)
Quarter: 2005Q2

REPORT INFORMATION
  Report Type: 
  Country: None (occurrence: None)
  Receive Date: 20050519
  Receipt Date: 20050509
  Transmission Date: 20051028
  Serious: Yes (Other)
  Sender: FDA-Public Use
  Company Number: 2005UW07252

PATIENT
  Age: 79 Year
  Sex: Male

DRUGS (19)
  1. CRESTOR [Suspect]
     Route: 048
  2. SPORANOX [Interacting]
     Route: 048
  3. ANDRIOL [Concomitant]
  4. APO-FOLIC [Concomitant]
  5. ASPIRIN [Concomitant]
  6. AVAPRO [Concomitant]
  7. CHRONOVERA [Concomitant]
  8. DIOVAN HCT [Concomitant]
  9. GEN-INDAPAMIDE [Concomitant]
  10. K-DUR 10 [Concomitant]
  11. METAMUCIL [Concomitant]
  12. MOBIC [Concomitant]
  13. NIZORAL CREAM [Concomitant]
  14. NOVO-ATENOL [Concomitant]
  15. NOVO-LOPERAMIDE [Concomitant]
  16. ONE A DAY [Concomitant]
  17. VITAMIN B6 [Concomitant]
  18. VITAMIN D [Concomitant]
  19. VITAMIN E [Concomitant]

REACTIONS (12)
  - ABDOMINAL DISTENSION [None]
  - ABDOMINAL PAIN [None]
  - DECREASED APPETITE [None]
  - DEHYDRATION [None]
  - DIARRHOEA [None]
  - DRUG INTERACTION [None]
  - EYE DISORDER [None]
  - MUSCLE ATROPHY [None]
  - NAUSEA [None]
  - RENAL IMPAIRMENT [None]
  - VISUAL DISTURBANCE [None]
  - WEIGHT DECREASED [None]
